FAERS Safety Report 20998492 (Version 1)
Quarter: 2022Q2

REPORT INFORMATION
  Report Type: Spontaneous
  Country: ES (occurrence: ES)
  Receive Date: 20220623
  Receipt Date: 20220623
  Transmission Date: 20220721
  Serious: Yes (Other)
  Sender: FDA-Public Use
  Company Number: None

PATIENT

DRUGS (6)
  1. BUPROPION HYDROCHLORIDE [Suspect]
     Active Substance: BUPROPION HYDROCHLORIDE
     Indication: Nicotine dependence
     Dosage: 3000 MG(TOTAL)
     Route: 048
     Dates: start: 20220529, end: 20220529
  2. PARACETAMOL CINFA [Concomitant]
     Indication: Product used for unknown indication
     Dosage: 1 G, TID
     Route: 048
     Dates: start: 20210315
  3. MAXALT MAX [Concomitant]
     Indication: Product used for unknown indication
     Dosage: 10 MG, QD
     Route: 048
     Dates: start: 20190903
  4. NOLOTIL [Concomitant]
     Indication: Product used for unknown indication
     Dosage: 575 MG, TID
     Route: 048
     Dates: start: 20210315
  5. TAMSULOSIN HYDROCHLORIDE [Concomitant]
     Active Substance: TAMSULOSIN HYDROCHLORIDE
     Indication: Benign prostatic hyperplasia
     Dosage: 0.4 MG, QD
     Route: 048
     Dates: start: 20200424
  6. OMEPRAZOLE [Concomitant]
     Active Substance: OMEPRAZOLE
     Indication: Product used for unknown indication
     Dosage: 20 MG, QD
     Route: 048
     Dates: start: 20220311

REACTIONS (2)
  - Suicide attempt [Recovered/Resolved]
  - Bradyphrenia [Recovered/Resolved]

NARRATIVE: CASE EVENT DATE: 20220529
